FAERS Safety Report 22618841 (Version 1)
Quarter: 2023Q2

REPORT INFORMATION
  Report Type: Other
  Country: US (occurrence: None)
  Receive Date: 20230620
  Receipt Date: 20230620
  Transmission Date: 20230722
  Serious: Yes (Other)
  Sender: FDA-Public Use
  Company Number: US-ROCHE-3371454

PATIENT

DRUGS (10)
  1. BEVACIZUMAB [Suspect]
     Active Substance: BEVACIZUMAB
     Indication: Eye disorder
     Route: 050
  2. RANIBIZUMAB [Suspect]
     Active Substance: RANIBIZUMAB
     Indication: Eye disorder
     Route: 050
  3. AFLIBERCEPT [Suspect]
     Active Substance: AFLIBERCEPT
     Indication: Eye disorder
     Route: 050
  4. BROLUCIZUMAB [Suspect]
     Active Substance: BROLUCIZUMAB
     Indication: Eye disorder
     Route: 050
  5. BETADINE [Concomitant]
     Active Substance: POVIDONE-IODINE
     Dosage: 5%
  6. LIDOCAINE [Concomitant]
     Active Substance: LIDOCAINE
     Dosage: 2%
  7. TETRACAINE [Concomitant]
     Active Substance: TETRACAINE
     Dosage: 0.5%
  8. PROPARACAINE [Concomitant]
     Active Substance: PROPARACAINE
     Dosage: 0.5%
  9. VANCOMYCIN [Concomitant]
     Active Substance: VANCOMYCIN
     Dosage: 1.0 MG/0.1 ML
  10. CEFTAZIDIME [Concomitant]
     Active Substance: CEFTAZIDIME
     Dosage: 2.25 MG/0.1 ML

REACTIONS (1)
  - Endophthalmitis [Unknown]
